FAERS Safety Report 10209648 (Version 1)
Quarter: 2014Q2

REPORT INFORMATION
  Report Type: Report from Study
  Country: US (occurrence: US)
  Receive Date: 20140602
  Receipt Date: 20140602
  Transmission Date: 20141212
  Serious: Yes (Other)
  Sender: FDA-Public Use
  Company Number: US-BIOGENIDEC-2014BI050925

PATIENT
  Age: 47 Year
  Sex: Female

DRUGS (2)
  1. AVONEX [Suspect]
     Indication: MULTIPLE SCLEROSIS
     Route: 030
     Dates: start: 20130226, end: 201309
  2. AVONEX [Suspect]
     Indication: MULTIPLE SCLEROSIS
     Route: 030
     Dates: start: 20130921

REACTIONS (11)
  - Coagulopathy [Recovered/Resolved]
  - Thyroid disorder [Recovered/Resolved]
  - Skin disorder [Recovered/Resolved]
  - Increased tendency to bruise [Recovered/Resolved]
  - Injection site haemorrhage [Recovered/Resolved]
  - Multiple sclerosis [Recovered/Resolved]
  - Heart rate decreased [Recovered/Resolved]
  - Drug intolerance [Recovered/Resolved]
  - Thyroid function test abnormal [Recovered/Resolved]
  - Palpitations [Recovered/Resolved]
  - Drug ineffective [Recovered/Resolved]
